FAERS Safety Report 9759700 (Version 1)
Quarter: 2013Q4

REPORT INFORMATION
  Report Type: Spontaneous
  Country: US (occurrence: US)
  Receive Date: 20131216
  Receipt Date: 20131216
  Transmission Date: 20140711
  Serious: No
  Sender: FDA-Public Use
  Company Number: US-GILEAD-2010-0029010

PATIENT
  Sex: Female
  Weight: 97.98 kg

DRUGS (11)
  1. LETAIRIS [Suspect]
     Indication: PULMONARY ARTERIAL HYPERTENSION
     Route: 048
     Dates: start: 20100303
  2. POTASSIUM CHLORIDE [Concomitant]
  3. MUCINEX [Concomitant]
  4. CEPHALEXIN [Concomitant]
  5. DILAUDID [Concomitant]
  6. LEVAQUIN [Concomitant]
  7. ZOFRAN [Concomitant]
  8. LASIX [Concomitant]
  9. COUMADIN [Concomitant]
  10. MUCOMYST [Concomitant]
  11. TYLENOL [Concomitant]

REACTIONS (1)
  - Dyspnoea [Unknown]
